FAERS Safety Report 22374154 (Version 2)
Quarter: 2023Q2

REPORT INFORMATION
  Report Type: Report from Study
  Country: US (occurrence: US)
  Receive Date: 20230526
  Receipt Date: 20230630
  Transmission Date: 20230721
  Serious: Yes (Hospitalization, Other)
  Sender: FDA-Public Use
  Company Number: US-GILEAD-2023-0628636

PATIENT
  Age: 78 Year
  Sex: Female

DRUGS (2)
  1. SACITUZUMAB GOVITECAN-HZIY [Suspect]
     Active Substance: SACITUZUMAB GOVITECAN-HZIY
     Indication: Ureteric cancer
     Dosage: 570 MG (OVER 3 HOURS ON DAY 1, THEN OVER 1 HOUR ON DAY 8 EVERY 21 DAYS)
     Route: 042
     Dates: start: 20230418
  2. SACITUZUMAB GOVITECAN-HZIY [Suspect]
     Active Substance: SACITUZUMAB GOVITECAN-HZIY
     Indication: Malignant neoplasm of renal pelvis

REACTIONS (9)
  - Pyrexia [Unknown]
  - White blood cell count decreased [Unknown]
  - Hypersensitivity [Unknown]
  - Renal injury [Unknown]
  - Oedema peripheral [Unknown]
  - Fluid retention [Unknown]
  - Product use issue [Unknown]
  - Nausea [Unknown]
  - Fatigue [Unknown]
